FAERS Safety Report 6194087-6 (Version None)
Quarter: 2009Q2

REPORT INFORMATION
  Report Type: 
  Country: None (occurrence: None)
  Receive Date: 20090514
  Receipt Date: 20090506
  Transmission Date: 20091009
  Serious: Yes (Other)
  Sender: FDA-Public Use
  Company Number: ADE2009-0601

PATIENT
  Age: 38 Year
  Sex: Male

DRUGS (4)
  1. ZIDOVUDINE [Suspect]
     Indication: HIV INFECTION
  2. LAMIVUDINE [Suspect]
     Indication: HIV INFECTION
  3. ABACAVIR [Suspect]
     Indication: HIV INFECTION
  4. TENOFOVIR [Suspect]
     Indication: HIV INFECTION

REACTIONS (1)
  - IMMUNE RECONSTITUTION SYNDROME [None]
